FAERS Safety Report 5958002-X (Version None)
Quarter: 2008Q4

REPORT INFORMATION
  Report Type: 
  Country: None (occurrence: None)
  Receive Date: 20081117
  Receipt Date: 20081110
  Transmission Date: 20090506
  Serious: Yes (Other)
  Sender: FDA-Public Use
  Company Number: 08H-163-0315160-00

PATIENT
  Age: 82 Year
  Sex: Female

DRUGS (3)
  1. AMIDATE INJECTION (ETOMIDATE INJECTION) [Suspect]
     Indication: ENDOTRACHEAL INTUBATION
     Dates: start: 20081002
  2. VERSED [Suspect]
     Indication: ENDOTRACHEAL INTUBATION
     Dates: start: 20081002
  3. BLINDED THERAPY [Concomitant]

REACTIONS (4)
  - BLOOD CREATININE INCREASED [None]
  - CHOLELITHIASIS [None]
  - HEPATITIS TOXIC [None]
  - PLEURAL EFFUSION [None]
